FAERS Safety Report 9255165 (Version 1)
Quarter: 2013Q2

REPORT INFORMATION
  Report Type: Spontaneous
  Country: US (occurrence: US)
  Receive Date: 20130425
  Receipt Date: 20130425
  Transmission Date: 20140414
  Serious: Yes (Hospitalization, Other)
  Sender: FDA-Public Use
  Company Number: US-ELI_LILLY_AND_COMPANY-US201304006694

PATIENT
  Age: 39 Year
  Sex: Female
  Weight: 65.76 kg

DRUGS (1)
  1. HUMALOG LISPRO [Suspect]
     Route: 058

REACTIONS (5)
  - Blood glucose increased [Unknown]
  - Diabetic ketoacidosis [Unknown]
  - Stress [Unknown]
  - Dry mouth [Unknown]
  - Pollakiuria [Unknown]
